FAERS Safety Report 9986659 (Version 1)
Quarter: 2014Q1

REPORT INFORMATION
  Report Type: Report from Study
  Country: US (occurrence: US)
  Receive Date: 20140307
  Receipt Date: 20140307
  Transmission Date: 20141002
  Serious: No
  Sender: FDA-Public Use
  Company Number: US-ABBVIE-13P-163-1082326-00

PATIENT
  Age: 43 Year
  Sex: Male
  Weight: 109.41 kg

DRUGS (10)
  1. HUMIRA [Suspect]
     Indication: COLITIS ULCERATIVE
     Dates: start: 201212, end: 201303
  2. HUMIRA [Suspect]
     Indication: ARTHRALGIA
  3. HUMIRA [Suspect]
     Indication: RHEUMATOID ARTHRITIS
  4. CYMBALTA [Suspect]
     Indication: PRODUCT USED FOR UNKNOWN INDICATION
  5. CLARITIN [Concomitant]
     Indication: HYPERSENSITIVITY
  6. ASACOL [Concomitant]
     Indication: COLITIS ULCERATIVE
  7. OMERAZOLE [Concomitant]
     Indication: COLITIS ULCERATIVE
  8. FLEXERIL [Concomitant]
     Indication: BACK DISORDER
  9. ONDANSETRON [Concomitant]
     Indication: NAUSEA
  10. PERCOCET [Concomitant]
     Indication: PAIN

REACTIONS (3)
  - Systemic lupus erythematosus [Not Recovered/Not Resolved]
  - Rash [Not Recovered/Not Resolved]
  - Rash [Not Recovered/Not Resolved]
